FAERS Safety Report 7794287-5 (Version None)
Quarter: 2011Q4

REPORT INFORMATION
  Report Type: 
  Country: None (occurrence: None)
  Receive Date: 20111004
  Receipt Date: 20110919
  Transmission Date: 20120403
  Serious: Yes (Other)
  Sender: FDA-Public Use
  Company Number: TR-AMGEN-TUROT2011049195

PATIENT
  Age: 7 Year
  Sex: Male

DRUGS (3)
  1. METHOTREXATE [Concomitant]
     Indication: ARTHRITIS
     Dosage: UNK
  2. PREDNISOLONE [Concomitant]
     Indication: ARTHRITIS
     Dosage: 2 MG/KG, UNK
  3. ENBREL [Suspect]
     Indication: PRODUCT USED FOR UNKNOWN INDICATION
     Dosage: 0.4 MG/KG, 2X/WEEK

REACTIONS (1)
  - ENCEPHALOPATHY [None]
